FAERS Safety Report 10094667 (Version 3)
Quarter: 2015Q2

REPORT INFORMATION
  Report Type: Spontaneous
  Country: US (occurrence: US)
  Receive Date: 20140422
  Receipt Date: 20150421
  Transmission Date: 20150821
  Serious: Yes (Hospitalization, Disabling, Other)
  Sender: FDA-Public Use
  Company Number: US-009507513-1404USA006196

PATIENT
  Sex: Female

DRUGS (3)
  1. FOSAMAX PLUS D [Suspect]
     Active Substance: ALENDRONATE SODIUM\CHOLECALCIFEROL
     Indication: OSTEOPOROSIS
     Dosage: 70 MG, QW
     Route: 048
     Dates: start: 200504, end: 201004
  2. FOSAMAX [Suspect]
     Active Substance: ALENDRONATE SODIUM
     Indication: OSTEOPOROSIS
     Dosage: 70 MG, QW
     Route: 048
     Dates: start: 2000, end: 200504
  3. FOSAMAX [Suspect]
     Active Substance: ALENDRONATE SODIUM
     Dosage: 70 MG, QW
     Route: 048
     Dates: start: 201004, end: 201103

REACTIONS (10)
  - Osteoporosis [Unknown]
  - Femur fracture [Unknown]
  - Cardiac disorder [Unknown]
  - Blood cholesterol increased [Unknown]
  - Diabetes mellitus [Unknown]
  - Rheumatoid arthritis [Unknown]
  - Blood pressure increased [Unknown]
  - Osteopenia [Unknown]
  - Fall [Unknown]
  - Cardiac disorder [Unknown]

NARRATIVE: CASE EVENT DATE: 2000
